FAERS Safety Report 5219973-2 (Version None)
Quarter: 2007Q1

REPORT INFORMATION
  Report Type: 
  Country: None (occurrence: None)
  Receive Date: 20070124
  Receipt Date: 20070124
  Transmission Date: 20070707
  Serious: Yes (Other)
  Sender: FDA-Public Use
  Company Number: None

PATIENT
  Age: 46 Year
  Sex: Male
  Weight: 103.9 kg

DRUGS (13)
  1. DEPAKOTE [Suspect]
  2. NITROGLYCERIN 0.1MG/HR PATCH [Concomitant]
  3. LORATADINE [Concomitant]
  4. GABAPENTIN [Concomitant]
  5. FERROUS SO4 [Concomitant]
  6. OMEPRAZOLE [Concomitant]
  7. ATENOLOL [Concomitant]
  8. BETAMETHASONE VALERATE [Concomitant]
  9. NITROGLYCERIN [Concomitant]
  10. ZAFIRLUKAST [Concomitant]
  11. HYDROXYZINE PAMOATE [Concomitant]
  12. VITAMIN B COMPLEX/ VITAMIN C [Concomitant]
  13. FISH OIL [Concomitant]

REACTIONS (1)
  - ABDOMINAL PAIN [None]
